FAERS Safety Report 4833357-8 (Version None)
Quarter: 2005Q4

REPORT INFORMATION
  Report Type: 
  Country: None (occurrence: None)
  Receive Date: 20051117
  Receipt Date: 20051104
  Transmission Date: 20060501
  Serious: Yes (Hospitalization, Other)
  Sender: FDA-Public Use
  Company Number: 2005153958

PATIENT
  Sex: Male

DRUGS (2)
  1. ZYVOX [Suspect]
     Indication: CATHETER RELATED INFECTION
  2. BENZODIAZEPINE DERIVATIVES (BENZODIAZEPINE DERIVATIVES) [Concomitant]

REACTIONS (3)
  - FUNGAL SEPSIS [None]
  - GENERAL PHYSICAL HEALTH DETERIORATION [None]
  - SEROTONIN SYNDROME [None]
